FAERS Safety Report 6858111-7 (Version None)
Quarter: 2010Q3

REPORT INFORMATION
  Report Type: 
  Country: None (occurrence: None)
  Receive Date: 20100719
  Receipt Date: 20100714
  Transmission Date: 20110219
  Serious: Yes (Death, Hospitalization, Other)
  Sender: FDA-Public Use
  Company Number: BR-ABBOTT-10P-020-0645363-00

PATIENT
  Sex: Female
  Weight: 70 kg

DRUGS (1)
  1. HUMIRA [Suspect]
     Indication: RHEUMATOID ARTHRITIS

REACTIONS (5)
  - DEVICE FAILURE [None]
  - INFECTION [None]
  - POSTOPERATIVE WOUND INFECTION [None]
  - SPINAL FRACTURE [None]
  - URINARY TRACT INFECTION [None]
